FAERS Safety Report 6724706-4 (Version None)
Quarter: 2010Q2

REPORT INFORMATION
  Report Type: 
  Country: None (occurrence: None)
  Receive Date: 20100511
  Receipt Date: 20100503
  Transmission Date: 20101027
  Serious: Yes (Hospitalization)
  Sender: FDA-Public Use
  Company Number: UTC-001066

PATIENT
  Age: 56 Year
  Sex: Female
  Weight: 79.8 kg

DRUGS (7)
  1. REMODULIN [Suspect]
     Indication: PULMONARY ARTERIAL HYPERTENSION
     Dosage: 40.32 UG/KG (0.028 UG/KG, 1 IN 1 MIN) INTRAVENOUS
     Route: 042
  2. FUROSEMIDE [Concomitant]
  3. PREDNISONE [Concomitant]
  4. POTASSIUM CHLORIDE [Concomitant]
  5. HYDROXLYCHLOROQUINE [Concomitant]
  6. AGGRENOX [Concomitant]
  7. TRACLEER [Concomitant]

REACTIONS (4)
  - HYPERTHERMIA [None]
  - HYPOTENSION [None]
  - LOWER RESPIRATORY TRACT INFECTION [None]
  - OXYGEN SATURATION DECREASED [None]
